FAERS Safety Report 4334904-5 (Version None)
Quarter: 2004Q2

REPORT INFORMATION
  Report Type: 
  Country: None (occurrence: None)
  Receive Date: 20040408
  Receipt Date: 20040309
  Transmission Date: 20050107
  Serious: Yes (Hospitalization, Disabling)
  Sender: FDA-Public Use
  Company Number: US-MERCK-0403USA00845

PATIENT
  Age: 70 Year
  Sex: Female

DRUGS (4)
  1. FOSAMAX [Concomitant]
     Route: 048
     Dates: end: 20040301
  2. ASPIRIN [Concomitant]
     Route: 065
     Dates: end: 20040301
  3. ZETIA [Suspect]
     Indication: HYPERLIPIDAEMIA
     Route: 048
     Dates: start: 20020101, end: 20040301
  4. TOPROL-XL [Concomitant]
     Route: 065
     Dates: end: 20040301

REACTIONS (4)
  - AUTOIMMUNE DISORDER [None]
  - LABORATORY TEST ABNORMAL [None]
  - RHABDOMYOLYSIS [None]
  - WHITE BLOOD CELL COUNT DECREASED [None]
